FAERS Safety Report 24612056 (Version 1)
Quarter: 2024Q4

REPORT INFORMATION
  Report Type: Report from Study
  Country: CN (occurrence: CN)
  Receive Date: 20241113
  Receipt Date: 20241113
  Transmission Date: 20250115
  Serious: Yes (Hospitalization)
  Sender: GILEAD
  Company Number: CN-GILEAD-2024-0693443

PATIENT
  Age: 69 Year
  Sex: Male

DRUGS (1)
  1. SACITUZUMAB GOVITECAN-HZIY [Suspect]
     Active Substance: SACITUZUMAB GOVITECAN-HZIY
     Indication: Gastric cancer
     Dosage: UNK [3 VIALS/TIME]
     Route: 041

REACTIONS (2)
  - Complication of device insertion [Recovered/Resolved]
  - Off label use [Unknown]
